FAERS Safety Report 7999761-4 (Version None)
Quarter: 2011Q4

REPORT INFORMATION
  Report Type: 
  Country: None (occurrence: None)
  Receive Date: 20111221
  Receipt Date: 20111209
  Transmission Date: 20120403
  Serious: Yes (Other)
  Sender: FDA-Public Use
  Company Number: ES-MYLANLABS-2011S1025720

PATIENT
  Age: 35 Year
  Sex: Male

DRUGS (6)
  1. CETIRIZINE [Suspect]
     Indication: URTICARIA
     Route: 048
  2. PIROXICAM [Suspect]
     Dosage: 20MG
     Route: 048
  3. LORATADINE [Suspect]
     Dosage: 10MG
     Route: 048
  4. CETIRIZINE [Suspect]
     Indication: ANGIOEDEMA
     Route: 048
  5. PIROXICAM [Suspect]
     Dosage: 10MG; FOLLOWED BY 20MG AFTER 120MIN
     Route: 048
  6. LORATADINE [Suspect]
     Dosage: 5MG; FOLLOWED BY 10MG AFTER 60MIN
     Route: 048

REACTIONS (1)
  - URTICARIA [None]
